FAERS Safety Report 5814867-3 (Version None)
Quarter: 2008Q3

REPORT INFORMATION
  Report Type: 
  Country: None (occurrence: None)
  Receive Date: 20080718
  Receipt Date: 20080711
  Transmission Date: 20090109
  Serious: Yes (Other)
  Sender: FDA-Public Use
  Company Number: SE-AVENTIS-200816648GDDC

PATIENT
  Age: 49 Year
  Sex: Female

DRUGS (6)
  1. ARAVA [Suspect]
     Indication: RHEUMATOID ARTHRITIS
     Route: 048
     Dates: start: 20060501, end: 20060801
  2. CITALOPRAM HYDROBROMIDE [Concomitant]
     Dosage: DOSE: UNK
  3. ACETAMINOPHEN [Concomitant]
     Dosage: DOSE: UNK
  4. DEXOFEN [Concomitant]
     Dosage: DOSE: UNK
  5. PREDNISOLONE [Concomitant]
     Dosage: DOSE: UNK
  6. OMEPRAZOLE [Concomitant]
     Dosage: DOSE: UNK

REACTIONS (2)
  - HYPERTENSION [None]
  - RETINAL HAEMORRHAGE [None]
